FAERS Safety Report 9166580 (Version 3)
Quarter: 2013Q2

REPORT INFORMATION
  Report Type: Spontaneous
  Country: US (occurrence: US)
  Receive Date: 20130315
  Receipt Date: 20130517
  Transmission Date: 20140414
  Serious: Yes (Hospitalization, Other)
  Sender: FDA-Public Use
  Company Number: US-PFIZER INC-2013083917

PATIENT
  Age: 70 Year
  Sex: Male
  Weight: 86.17 kg

DRUGS (6)
  1. CELEBREX [Suspect]
     Indication: ARTHRITIS
     Dosage: 200 MG, 1X/DAY
     Dates: start: 2012, end: 201303
  2. CELEBREX [Suspect]
     Indication: PAIN
  3. LIPITOR [Suspect]
     Indication: BLOOD CHOLESTEROL ABNORMAL
     Dosage: 40 MG, 1X/DAY
  4. LISINOPRIL [Suspect]
     Dosage: UNK
  5. RAPAFLO [Suspect]
     Dosage: UNK
  6. FLOMAX [Suspect]
     Dosage: UNK

REACTIONS (6)
  - Apparent death [Unknown]
  - Loss of consciousness [Recovered/Resolved]
  - Blindness [Unknown]
  - Blood pressure decreased [Unknown]
  - Pruritus [Recovered/Resolved]
  - Erythema [Recovered/Resolved]
